FAERS Safety Report 14145375 (Version 1)
Quarter: 2017Q4

REPORT INFORMATION
  Report Type: Spontaneous
  Country: US (occurrence: US)
  Receive Date: 20171031
  Receipt Date: 20171031
  Transmission Date: 20180321
  Serious: No
  Sender: FDA-Public Use
  Company Number: US-TARO-2016TAR00861

PATIENT
  Age: 76 Year
  Sex: Male
  Weight: 68.93 kg

DRUGS (9)
  1. ACETAMINOPHEN. [Concomitant]
     Active Substance: ACETAMINOPHEN
     Dosage: UNK, AS NEEDED
  2. ATORVASTATIN [Concomitant]
     Active Substance: ATORVASTATIN
     Dosage: 1 TABLETS, 1X/DAY
     Dates: start: 1976
  3. METOPROLOL. [Concomitant]
     Active Substance: METOPROLOL
     Dosage: 1 TABLETS, 2X/DAY
     Dates: start: 2011
  4. VITAMIN D3 [Concomitant]
     Active Substance: CHOLECALCIFEROL
     Dosage: 1 TABLETS, 1X/DAY
     Dates: start: 2013
  5. PHENYTOIN SODIUM EXTENDED [Suspect]
     Active Substance: PHENYTOIN SODIUM
     Indication: PRODUCT QUALITY ISSUE
     Dosage: 100 MG, 1X/WEEK
     Route: 048
     Dates: start: 201609, end: 20161007
  6. LATANOPROST EYE DROPS [Concomitant]
     Active Substance: LATANOPROST
     Dosage: 1 GTT, 1X/DAY
     Dates: start: 2013
  7. LOSARTAN. [Concomitant]
     Active Substance: LOSARTAN
     Dosage: 1 TABLETS, 1X/DAY
     Dates: start: 2011
  8. IBUPROFEN. [Concomitant]
     Active Substance: IBUPROFEN
     Dosage: UNK, AS NEEDED
  9. LEVOTHYROXINE. [Concomitant]
     Active Substance: LEVOTHYROXINE
     Dosage: 1 TABLETS, 1X/DAY
     Dates: start: 2011

REACTIONS (3)
  - Sleep disorder [Recovered/Resolved]
  - Off label use [Recovered/Resolved]
  - Dyspepsia [Recovered/Resolved]

NARRATIVE: CASE EVENT DATE: 201609
